FAERS Safety Report 22998466 (Version 4)
Quarter: 2024Q1

REPORT INFORMATION
  Report Type: Spontaneous
  Country: CA (occurrence: CA)
  Receive Date: 20230928
  Receipt Date: 20240118
  Transmission Date: 20240409
  Serious: Yes (Other)
  Sender: FDA-Public Use
  Company Number: CA-CELLTRION INC.-2023CA018714

PATIENT

DRUGS (7)
  1. INFLECTRA [Suspect]
     Active Substance: INFLIXIMAB-DYYB
     Indication: Ankylosing spondylitis
     Dosage: 300 MG,WEEK 0.2.6 THEN Q 8 WEEKS
     Route: 042
     Dates: start: 20221027
  2. INFLECTRA [Suspect]
     Active Substance: INFLIXIMAB-DYYB
     Dosage: 300 MG,WEEK 0.2.6 THEN Q 8 WEEKS
     Route: 042
     Dates: start: 20230727
  3. INFLECTRA [Suspect]
     Active Substance: INFLIXIMAB-DYYB
     Dosage: 300MG AFTER 7 WEEKS AND 6 DAYS, EVERY 8 WEEKS
     Route: 042
     Dates: start: 20230920
  4. INFLECTRA [Suspect]
     Active Substance: INFLIXIMAB-DYYB
     Dosage: 300 MG WEEK 0.2.6 THEN Q 8 WEEKS
     Route: 042
     Dates: start: 20231115
  5. INFLECTRA [Suspect]
     Active Substance: INFLIXIMAB-DYYB
     Dosage: 300 MG WEEK 0.2.6 THEN Q 8 WEEKS(8 WEEKS)
     Route: 042
     Dates: start: 20240110
  6. CELEBREX [Concomitant]
     Active Substance: CELECOXIB
     Dosage: 200 MG
     Route: 065
  7. EFFEXOR [Concomitant]
     Active Substance: VENLAFAXINE HYDROCHLORIDE
     Dosage: 75 MG
     Route: 048

REACTIONS (8)
  - Foot fracture [Recovering/Resolving]
  - Pneumonitis [Recovered/Resolved]
  - Hypertension [Not Recovered/Not Resolved]
  - Pain in extremity [Recovering/Resolving]
  - Peripheral swelling [Recovering/Resolving]
  - Fall [Unknown]
  - COVID-19 [Recovered/Resolved]
  - Condition aggravated [Not Recovered/Not Resolved]

NARRATIVE: CASE EVENT DATE: 20230901
